FAERS Safety Report 9463583 (Version 1)
Quarter: 2013Q3

REPORT INFORMATION
  Report Type: Spontaneous
  Country: US (occurrence: None)
  Receive Date: 20130815
  Receipt Date: 20130815
  Transmission Date: 20140515
  Serious: No
  Sender: FDA-Public Use
  Company Number: None

PATIENT
  Age: 76 Year
  Sex: Male
  Weight: 87.5 kg

DRUGS (1)
  1. AMIODARONE [Suspect]
     Dosage: 300 MG EVERY DAY  PO
     Route: 048
     Dates: start: 20130321, end: 20130729

REACTIONS (3)
  - Cough [None]
  - Fall [None]
  - Pulmonary oedema [None]
